FAERS Safety Report 15860670 (Version 1)
Quarter: 2019Q1

REPORT INFORMATION
  Report Type: Report from Study
  Country: None (occurrence: BR)
  Receive Date: 20190124
  Receipt Date: 20190124
  Transmission Date: 20190417
  Serious: Yes (Hospitalization, Other)
  Sender: FDA-Public Use
  Company Number: BR-ABBVIE-19K-020-2631884-00

PATIENT
  Age: 57 Year
  Sex: Female

DRUGS (1)
  1. HUMIRA [Suspect]
     Active Substance: ADALIMUMAB
     Indication: PSORIATIC ARTHROPATHY
     Route: 058

REACTIONS (9)
  - Hernia [Unknown]
  - Hospitalisation [Unknown]
  - Serum ferritin decreased [Recovered/Resolved]
  - Psoriasis [Unknown]
  - Malaise [Unknown]
  - Asthenia [Not Recovered/Not Resolved]
  - Intestinal obstruction [Unknown]
  - Post procedural complication [Recovered/Resolved]
  - Injection site discolouration [Recovering/Resolving]

NARRATIVE: CASE EVENT DATE: 201810
